FAERS Safety Report 23035098 (Version 1)
Quarter: 2023Q4

REPORT INFORMATION
  Report Type: Spontaneous
  Country: CN (occurrence: CN)
  Receive Date: 20231005
  Receipt Date: 20231005
  Transmission Date: 20240109
  Serious: Yes (Other)
  Sender: FDA-Public Use
  Company Number: CN-SANDOZ-SDZ2023CN037906

PATIENT
  Age: 53 Year
  Sex: Female

DRUGS (2)
  1. ZOLEDRONIC ACID [Suspect]
     Active Substance: ZOLEDRONIC ACID
     Indication: Product used for unknown indication
     Dosage: UNK
     Route: 065
     Dates: start: 20180618
  2. OSIMERTINIB [Concomitant]
     Active Substance: OSIMERTINIB
     Indication: Metastases to central nervous system
     Dosage: 80 MG, QD
     Route: 048

REACTIONS (1)
  - Osteonecrosis of jaw [Recovered/Resolved]
